FAERS Safety Report 20955588 (Version 1)
Quarter: 2022Q2

REPORT INFORMATION
  Report Type: Spontaneous
  Country: FR (occurrence: FR)
  Receive Date: 20220614
  Receipt Date: 20220614
  Transmission Date: 20220721
  Serious: Yes (Other)
  Sender: FDA-Public Use
  Company Number: None

PATIENT
  Age: 34 Year
  Sex: Male

DRUGS (3)
  1. GABAPENTIN [Suspect]
     Active Substance: GABAPENTIN
     Indication: Product used for unknown indication
     Dosage: 3600 MILLIGRAM, QD (3600 MG/D)
     Route: 048
  2. LIDOCAINE [Suspect]
     Active Substance: LIDOCAINE
     Indication: Product used for unknown indication
     Dosage: 1 DOSAGE FORM, QD (1/D)
     Route: 003
  3. SKENAN [Suspect]
     Active Substance: MORPHINE SULFATE
     Indication: Product used for unknown indication
     Dosage: 2 DOSAGE FORM, QD (2 CPS/D) PROLONGED-RELEASE  MICROGRANULES IN CAPSULE
     Route: 048

REACTIONS (1)
  - Drug use disorder [Not Recovered/Not Resolved]
